FAERS Safety Report 24626013 (Version 1)
Quarter: 2024Q4

REPORT INFORMATION
  Report Type: Spontaneous
  Country: AT (occurrence: AT)
  Receive Date: 20241115
  Receipt Date: 20241115
  Transmission Date: 20250115
  Serious: Yes (Other)
  Sender: MYLAN
  Company Number: None

PATIENT
  Age: 68 Year
  Sex: Male

DRUGS (4)
  1. PREGABALIN [Suspect]
     Active Substance: PREGABALIN
     Indication: Product used for unknown indication
     Dosage: UNK (TAKEN FOR APPROX. 9 MONTHS)
     Route: 065
     Dates: start: 202401
  2. ROSUVASTATIN [Suspect]
     Active Substance: ROSUVASTATIN
     Indication: Product used for unknown indication
     Dosage: UNK (TAKEN FOR MORE THAN 3 YEARS)
     Route: 065
     Dates: start: 2021
  3. METFORMIN [Concomitant]
     Active Substance: METFORMIN HYDROCHLORIDE
     Dosage: 2000 MILLIGRAM, QD (1-0-1)
     Route: 065
  4. ALFUZOSIN STADA [Concomitant]
     Dosage: 10 MILLIGRAM, QD (0-0-1, SUSTAINED-RELEASE TABLETS)
     Route: 065

REACTIONS (2)
  - Hyperlipasaemia [Not Recovered/Not Resolved]
  - Blood creatine phosphokinase increased [Not Recovered/Not Resolved]

NARRATIVE: CASE EVENT DATE: 20241016
